FAERS Safety Report 16742318 (Version 2)
Quarter: 2019Q3

REPORT INFORMATION
  Report Type: Spontaneous
  Country: NL (occurrence: NL)
  Receive Date: 20190826
  Receipt Date: 20190903
  Transmission Date: 20191005
  Serious: Yes (Hospitalization)
  Sender: FDA-Public Use
  Company Number: NL-TEVA-2019-NL-1096527

PATIENT
  Age: 59 Year
  Sex: Male

DRUGS (6)
  1. LEFLUNOMIDE 20MG [Concomitant]
     Active Substance: LEFLUNOMIDE
     Dosage: 1D1
     Dates: start: 20190708
  2. TRIAMCINOLON CR 1MG [Concomitant]
     Dosage: 1DA
  3. CELECOXIB  CAPSULE, 200 MG (MILLIGRAM) [Suspect]
     Active Substance: CELECOXIB
     Indication: PSORIATIC ARTHROPATHY
     Dosage: 2 TIMES A DAY 1 TABLET
     Dates: start: 20190708, end: 20190716
  4. PREDNISON [Concomitant]
     Active Substance: PREDNISONE
  5. TAMSULOSINE 0,4MG [Concomitant]
     Dosage: 1D1
     Dates: start: 20150325
  6. CAD ORANGE BRUISGRANULAAT 500MG/880IE [Concomitant]
     Dates: start: 20180918

REACTIONS (5)
  - Rash generalised [Recovering/Resolving]
  - Malaise [Unknown]
  - Vomiting [Unknown]
  - Pyrexia [Unknown]
  - Erythema multiforme [Unknown]

NARRATIVE: CASE EVENT DATE: 20190716
